FAERS Safety Report 10960973 (Version 1)
Quarter: 2015Q1

REPORT INFORMATION
  Report Type: Spontaneous
  Country: US (occurrence: None)
  Receive Date: 20150326
  Receipt Date: 20150326
  Transmission Date: 20150721
  Serious: No
  Sender: FDA-Public Use
  Company Number: None

PATIENT
  Sex: Male

DRUGS (10)
  1. BUPROPION [Concomitant]
     Active Substance: BUPROPION
  2. TAMSULOSIN [Concomitant]
     Active Substance: TAMSULOSIN
  3. BACLOFEN. [Concomitant]
     Active Substance: BACLOFEN
  4. AMPYRA [Suspect]
     Active Substance: DALFAMPRIDINE
     Indication: MULTIPLE SCLEROSIS
     Route: 048
     Dates: start: 20121120, end: 201501
  5. CYCLOBENZAPRINE [Suspect]
     Active Substance: CYCLOBENZAPRINE
  6. IBUPROFEN. [Concomitant]
     Active Substance: IBUPROFEN
  7. SIMVASTATIN. [Concomitant]
     Active Substance: SIMVASTATIN
  8. GLATIRAMER [Concomitant]
     Active Substance: GLATIRAMER
  9. VENLAFAXINE [Concomitant]
     Active Substance: VENLAFAXINE HYDROCHLORIDE
  10. HYDROCODONE/APAP [Concomitant]
     Active Substance: ACETAMINOPHEN\HYDROCODONE

REACTIONS (2)
  - Drug ineffective [None]
  - Asthenia [None]

NARRATIVE: CASE EVENT DATE: 20150325
